FAERS Safety Report 8181270-3 (Version None)
Quarter: 2012Q1

REPORT INFORMATION
  Report Type: 
  Country: None (occurrence: None)
  Receive Date: 20120126
  Receipt Date: 20111014
  Transmission Date: 20120608
  Serious: Yes (Death)
  Sender: FDA-Public Use
  Company Number: PHEH2011US04421

PATIENT
  Age: 64 Year
  Sex: Female
  Weight: 97 kg

DRUGS (11)
  1. LOVENOX [Concomitant]
  2. METHADONE HCL [Concomitant]
  3. OMEPRAZOLE [Concomitant]
  4. LORTAB [Concomitant]
  5. COMPAZINE [Concomitant]
  6. LISINOPRIL [Concomitant]
  7. VISTARIL (HYDROCHLORIDE) [Concomitant]
  8. OXYCODONE HCL [Concomitant]
  9. AFINITOR [Suspect]
     Indication: NEOPLASM
     Dosage: 5 MG , QD, ORAL
     Route: 048
     Dates: start: 20110608, end: 20110726
  10. SORAFENIB (SORAFENIB) 200MG [Suspect]
     Indication: NEOPLASM
     Dosage: 400 MG, BID, ORAL
     Route: 048
     Dates: start: 20110615, end: 20110726
  11. EFFEXOR [Concomitant]

REACTIONS (3)
  - NEOPLASM PROGRESSION [None]
  - BILE DUCT CANCER [None]
  - NEOPLASM MALIGNANT [None]
